FAERS Safety Report 7806630-9 (Version None)
Quarter: 2011Q4

REPORT INFORMATION
  Report Type: 
  Country: None (occurrence: None)
  Receive Date: 20111011
  Receipt Date: 20110929
  Transmission Date: 20120403
  Serious: No
  Sender: FDA-Public Use
  Company Number: US-JNJFOC-20111001234

PATIENT
  Age: 26 Year
  Sex: Male

DRUGS (2)
  1. INVEGA SUSTENNA [Suspect]
     Indication: SCHIZOPHRENIA
     Route: 030
     Dates: start: 20110301
  2. COGENTIN [Suspect]
     Indication: EYE MOVEMENT DISORDER
     Route: 048
     Dates: start: 20110601

REACTIONS (3)
  - EYE MOVEMENT DISORDER [None]
  - COGNITIVE DISORDER [None]
  - WEIGHT INCREASED [None]
